FAERS Safety Report 10718103 (Version 2)
Quarter: 2015Q3

REPORT INFORMATION
  Report Type: Spontaneous
  Country: FR (occurrence: FR)
  Receive Date: 20150117
  Receipt Date: 20150925
  Transmission Date: 20151125
  Serious: Yes (Death, Life-Threatening, Hospitalization)
  Sender: FDA-Public Use
  Company Number: FR-ASTRAZENECA-2015SE02895

PATIENT
  Age: 37 Year
  Sex: Female

DRUGS (7)
  1. MOXYDAR [Suspect]
     Active Substance: ALUMINUM HYDROXIDE\ALUMINUM PHOSPHATE\GUAR GUM\MAGNESIUM HYDROXIDE
     Indication: ABDOMINAL PAIN
     Route: 065
  2. DIPRIVAN [Suspect]
     Active Substance: PROPOFOL
     Dosage: ONCE/SINGLE ADMINISTRATION
     Route: 042
     Dates: start: 20141202
  3. PARACETAMOL [Suspect]
     Active Substance: ACETAMINOPHEN
     Dosage: 1 G ONCE/SINGLE ADMINISTRATION (NON AZ PRODUCT)
     Route: 065
     Dates: start: 201412
  4. SEVOFLURANE. [Suspect]
     Active Substance: SEVOFLURANE
     Dosage: ONCE/SINGLE ADMINISTRATION
     Route: 065
     Dates: start: 20141202
  5. SYNTOCINON [Suspect]
     Active Substance: OXYTOCIN
     Dosage: ONCE/SINGLE ADMINISTRATION
     Route: 065
     Dates: start: 20141202
  6. RHOPHYLAC [Concomitant]
     Active Substance: HUMAN RHO(D) IMMUNE GLOBULIN
  7. OMEPRAZOLE. [Suspect]
     Active Substance: OMEPRAZOLE
     Indication: ABDOMINAL PAIN
     Route: 048

REACTIONS (5)
  - Shock haemorrhagic [Fatal]
  - Intestinal ischaemia [Unknown]
  - Drug-induced liver injury [Unknown]
  - Hepatic necrosis [Fatal]
  - Septic shock [Fatal]

NARRATIVE: CASE EVENT DATE: 20141212
